FAERS Safety Report 24015832 (Version 1)
Quarter: 2024Q2

REPORT INFORMATION
  Report Type: Report from Study
  Country: IT (occurrence: IT)
  Receive Date: 20240626
  Receipt Date: 20240626
  Transmission Date: 20240716
  Serious: Yes (Hospitalization, Other)
  Sender: FDA-Public Use
  Company Number: None

PATIENT
  Age: 2 Year
  Sex: Male
  Weight: 17 kg

DRUGS (3)
  1. CYCLOPHOSPHAMIDE [Suspect]
     Active Substance: CYCLOPHOSPHAMIDE
     Indication: B-cell type acute leukaemia
     Dosage: 580.00 MG
     Route: 042
     Dates: start: 20240520, end: 20240520
  2. PURINETHOL [Suspect]
     Active Substance: MERCAPTOPURINE
     Indication: B-cell type acute leukaemia
     Dosage: 37.5 MG/DAY
     Route: 048
     Dates: start: 20240504, end: 20240602
  3. CYTARABINE [Suspect]
     Active Substance: CYTARABINE
     Indication: B-cell type acute leukaemia
     Dosage: 43.50 MG INFUSION IN 10 ML NACL 0.9% IN 3 MIN. FROM DAY 08 TO DAY 11-MAY-2024, 43.50 MG INFUSION IN
     Route: 042
     Dates: start: 20240508, end: 20240603

REACTIONS (4)
  - Hypogammaglobulinaemia [Unknown]
  - Febrile neutropenia [Recovering/Resolving]
  - Pancytopenia [Not Recovered/Not Resolved]
  - Anaemia [Recovering/Resolving]

NARRATIVE: CASE EVENT DATE: 20240524
